FAERS Safety Report 20098545 (Version 1)
Quarter: 2021Q4

REPORT INFORMATION
  Report Type: Spontaneous
  Country: US (occurrence: US)
  Receive Date: 20211122
  Receipt Date: 20211122
  Transmission Date: 20220303
  Serious: No
  Sender: FDA-Public Use
  Company Number: US-BRACCO-2020US04404

PATIENT
  Age: 77 Year
  Sex: Male

DRUGS (5)
  1. LUMASON [Suspect]
     Active Substance: SULFUR HEXAFLUORIDE
     Indication: Diagnostic procedure
     Dosage: UNK UNK, SINGLE
     Route: 042
     Dates: start: 20201008, end: 20201008
  2. LUMASON [Suspect]
     Active Substance: SULFUR HEXAFLUORIDE
     Indication: Diagnostic procedure
     Dosage: UNK UNK, SINGLE
     Route: 042
     Dates: start: 20201008, end: 20201008
  3. LUMASON [Suspect]
     Active Substance: SULFUR HEXAFLUORIDE
     Indication: Diagnostic procedure
     Dosage: UNK UNK, SINGLE
     Route: 042
     Dates: start: 20201008, end: 20201008
  4. SODIUM CHLORIDE [Concomitant]
     Active Substance: SODIUM CHLORIDE
     Dosage: 0.9%, 5 ML MIXED TO VIAL
     Route: 042
     Dates: start: 20201008, end: 20201008
  5. SODIUM CHLORIDE [Concomitant]
     Active Substance: SODIUM CHLORIDE
     Dosage: IV FLUSH
     Route: 042
     Dates: start: 20201008, end: 20201008

REACTIONS (2)
  - Therapeutic product effect decreased [Unknown]
  - Product reconstitution quality issue [Unknown]

NARRATIVE: CASE EVENT DATE: 20201008
